FAERS Safety Report 4344413-5 (Version None)
Quarter: 2004Q2

REPORT INFORMATION
  Report Type: 
  Country: None (occurrence: None)
  Receive Date: 20040419
  Receipt Date: 20040408
  Transmission Date: 20050107
  Serious: Yes (Hospitalization)
  Sender: FDA-Public Use
  Company Number: CA-JNJFOC-20040201760

PATIENT
  Age: 79 Year
  Sex: Female
  Weight: 72.2 kg

DRUGS (4)
  1. GALANTAMINE- BLINDED (GALANTAMINE) TABLETS [Suspect]
     Indication: DEMENTIA ALZHEIMER'S TYPE
     Dosage: 8 OR 16 MG DAILY
     Dates: start: 20030919
  2. ZYPREXA [Concomitant]
  3. VITAMIN B12 (INJECTION)CYANOCOBALAMIN [Concomitant]
  4. PROZAC [Concomitant]

REACTIONS (5)
  - ANXIETY [None]
  - CONTUSION [None]
  - DEPRESSION [None]
  - FALL [None]
  - SUICIDAL IDEATION [None]
